FAERS Safety Report 17068851 (Version 3)
Quarter: 2019Q4

REPORT INFORMATION
  Report Type: Spontaneous
  Country: US (occurrence: US)
  Receive Date: 20191124
  Receipt Date: 20191231
  Transmission Date: 20200122
  Serious: Yes (Other)
  Sender: FDA-Public Use
  Company Number: US-UNITED THERAPEUTICS-UNT-2019-017782

PATIENT
  Sex: Female
  Weight: 82.54 kg

DRUGS (6)
  1. REMODULIN [Suspect]
     Active Substance: TREPROSTINIL
     Indication: PULMONARY ARTERIAL HYPERTENSION
     Dosage: 0.008 ?G/KG, CONTINUING
     Route: 058
     Dates: start: 20191018
  2. ELIQUIS [Concomitant]
     Active Substance: APIXABAN
     Indication: PRODUCT USED FOR UNKNOWN INDICATION
     Dosage: UNK
     Route: 065
  3. ADEMPAS [Suspect]
     Active Substance: RIOCIGUAT
     Indication: PRODUCT USED FOR UNKNOWN INDICATION
     Dosage: UNK
     Route: 065
     Dates: start: 2019
  4. REMODULIN [Suspect]
     Active Substance: TREPROSTINIL
     Dosage: 0.023 ?G/KG, CONTINUING
     Route: 058
     Dates: start: 2019
  5. REMODULIN [Suspect]
     Active Substance: TREPROSTINIL
     Dosage: 0.015 ?G/KG, CONTINUING
     Route: 058
     Dates: start: 2019
  6. REMODULIN [Suspect]
     Active Substance: TREPROSTINIL
     Indication: PULMONARY ARTERIAL HYPERTENSION
     Dosage: 0.025 ?G/KG, CONTINUING
     Route: 058
     Dates: start: 20191018

REACTIONS (11)
  - Pain in jaw [Recovered/Resolved]
  - Rhinorrhoea [Unknown]
  - Respiratory tract congestion [Unknown]
  - Abdominal discomfort [Recovered/Resolved]
  - Infusion site pain [Unknown]
  - Influenza like illness [Unknown]
  - Infusion site erythema [Unknown]
  - Nausea [Recovering/Resolving]
  - Cough [Unknown]
  - Weight decreased [Unknown]
  - Headache [Recovered/Resolved]

NARRATIVE: CASE EVENT DATE: 2019
